FAERS Safety Report 5793426-5 (Version None)
Quarter: 2008Q2

REPORT INFORMATION
  Report Type: 
  Country: None (occurrence: None)
  Receive Date: 20080627
  Receipt Date: 20080618
  Transmission Date: 20081010
  Serious: Yes (Other)
  Sender: FDA-Public Use
  Company Number: IT-JNJFOC-20080604430

PATIENT
  Sex: Male

DRUGS (8)
  1. TMC125 [Suspect]
     Route: 048
  2. TMC125 [Suspect]
     Indication: HIV INFECTION
     Route: 048
  3. PREZISTA [Suspect]
     Route: 048
  4. PREZISTA [Suspect]
     Indication: HIV INFECTION
     Route: 048
  5. MK-0518 [Suspect]
     Indication: HIV INFECTION
  6. ENFUVIRTIDE [Suspect]
     Indication: HIV INFECTION
  7. EPIVIR [Suspect]
     Indication: HIV INFECTION
  8. NORVIR [Suspect]
     Indication: HIV INFECTION

REACTIONS (1)
  - HEPATITIS CHOLESTATIC [None]
